FAERS Safety Report 24313795 (Version 1)
Quarter: 2024Q3

REPORT INFORMATION
  Report Type: Spontaneous
  Country: US (occurrence: US)
  Receive Date: 20240912
  Receipt Date: 20240912
  Transmission Date: 20241016
  Serious: No
  Sender: JOHNSON AND JOHNSON
  Company Number: US-JNJFOC-20240923467

PATIENT
  Age: 5 Decade
  Sex: Female

DRUGS (1)
  1. MENS ROGAINE EXTRA STRENGTH [Suspect]
     Active Substance: MINOXIDIL
     Indication: Androgenetic alopecia
     Dosage: ONE PUMP TWICE DAILY
     Route: 065
     Dates: start: 2014

REACTIONS (3)
  - Expired product administered [Unknown]
  - Product use issue [Unknown]
  - Intentional product misuse [Unknown]
